FAERS Safety Report 10731493 (Version 1)
Quarter: 2015Q1

REPORT INFORMATION
  Report Type: Spontaneous
  Country: DK (occurrence: DK)
  Receive Date: 20150123
  Receipt Date: 20150123
  Transmission Date: 20150721
  Serious: Yes (Hospitalization)
  Sender: FDA-Public Use
  Company Number: PHHY2015DK004918

PATIENT
  Age: 82 Year
  Sex: Male

DRUGS (11)
  1. AMLODIPIN ACTAVIS//AMLODIPINE BESILATE [Concomitant]
     Indication: HYPERTENSION
     Route: 065
     Dates: start: 20140820, end: 20141021
  2. BISOPROLOL ACTAVIS [Concomitant]
     Active Substance: BISOPROLOL
     Indication: HYPERTENSION
     Route: 065
     Dates: start: 20141020
  3. CENTYL MED KALIUMKLORID [Concomitant]
     Active Substance: BENDROFLUMETHIAZIDE\POTASSIUM CHLORIDE
     Indication: HYPERTENSION
     Route: 065
     Dates: start: 20140820, end: 20141115
  4. MORFIN ^DAK^ [Concomitant]
     Indication: PAIN
     Route: 065
     Dates: start: 20141020
  5. HJERTEMAGNYL                       /00228701/ [Concomitant]
     Active Substance: ASPIRIN\MAGNESIUM OXIDE
     Indication: HYPERTENSION
     Route: 065
     Dates: start: 20140922
  6. ZARATOR//ATORVASTATIN CALCIUM [Concomitant]
     Indication: HYPERCHOLESTEROLAEMIA
     Route: 065
     Dates: start: 20140820, end: 20141112
  7. EMCONCOR [Concomitant]
     Active Substance: BISOPROLOL FUMARATE
     Indication: CARDIAC DISORDER
     Route: 065
     Dates: start: 20090929, end: 20141020
  8. MALFIN [Concomitant]
     Indication: PAIN
     Route: 065
     Dates: start: 20141020
  9. LOSARTAN AND HYDROCHLOROTHIAZIDE [Suspect]
     Active Substance: HYDROCHLOROTHIAZIDE\LOSARTAN POTASSIUM
     Indication: HYPERTENSION
     Dosage: 100 MG, QD
     Route: 048
     Dates: start: 20140820, end: 20141118
  10. GLUCOSAMINE [Concomitant]
     Active Substance: GLUCOSAMINE
     Indication: RHEUMATIC DISORDER
     Route: 065
     Dates: start: 20140820, end: 20141208
  11. PARACETAMOL [Concomitant]
     Active Substance: ACETAMINOPHEN
     Indication: PAIN
     Route: 065
     Dates: start: 20140929

REACTIONS (7)
  - Decreased appetite [Recovering/Resolving]
  - Malaise [Recovered/Resolved]
  - Nausea [Recovering/Resolving]
  - Ocular icterus [Recovering/Resolving]
  - Mental disorder [Recovering/Resolving]
  - Hepatitis toxic [Recovering/Resolving]
  - Yellow skin [Recovering/Resolving]

NARRATIVE: CASE EVENT DATE: 201410
